FAERS Safety Report 9205468 (Version 1)
Quarter: 2013Q2

REPORT INFORMATION
  Report Type: Spontaneous
  Country: AU (occurrence: AU)
  Receive Date: 20130403
  Receipt Date: 20130403
  Transmission Date: 20140414
  Serious: Yes (Other)
  Sender: FDA-Public Use
  Company Number: AU-AMGEN-AUSSP2013021545

PATIENT
  Age: 37 Year
  Sex: Female

DRUGS (5)
  1. NEULASTA [Suspect]
     Indication: PROPHYLAXIS
     Dosage: UNK
  2. NEUPOGEN [Concomitant]
     Indication: PROPHYLAXIS
     Dosage: UNK
  3. TAXOTERE [Concomitant]
     Indication: BREAST CANCER
     Dosage: UNK
  4. ADRIAMYCIN                         /00330901/ [Concomitant]
     Indication: BREAST CANCER
     Dosage: UNK
  5. CYCLOPHOSPHAMIDE [Concomitant]
     Indication: BREAST CANCER
     Dosage: UNK

REACTIONS (2)
  - Febrile neutropenia [Unknown]
  - Drug ineffective [Unknown]
